FAERS Safety Report 7465070-5 (Version None)
Quarter: 2011Q2

REPORT INFORMATION
  Report Type: 
  Country: None (occurrence: None)
  Receive Date: 20110509
  Receipt Date: 20110425
  Transmission Date: 20111010
  Serious: Yes (Other)
  Sender: FDA-Public Use
  Company Number: US-JNJFOC-20110500178

PATIENT
  Sex: Male
  Weight: 99.79 kg

DRUGS (1)
  1. NUCYNTA [Suspect]
     Indication: BACK PAIN
     Route: 048

REACTIONS (1)
  - DEPRESSION [None]
